FAERS Safety Report 20901295 (Version 3)
Quarter: 2022Q2

REPORT INFORMATION
  Report Type: Report from Study
  Country: US (occurrence: US)
  Receive Date: 20220601
  Receipt Date: 20220610
  Transmission Date: 20220721
  Serious: Yes (Hospitalization)
  Sender: FDA-Public Use
  Company Number: US-NOVARTISPH-NVSC2022US125232

PATIENT
  Age: 68 Year
  Sex: Male
  Weight: 93.7 kg

DRUGS (2)
  1. PAZOPANIB [Suspect]
     Active Substance: PAZOPANIB
     Indication: Clear cell renal cell carcinoma
     Dosage: 800 MG QD (28 D)
     Route: 048
     Dates: start: 20220413, end: 20220511
  2. BEVACIZUMAB [Suspect]
     Active Substance: BEVACIZUMAB
     Indication: Clear cell renal cell carcinoma
     Dosage: 10 MG/KG, DAY 36 AND DAY 50
     Route: 042
     Dates: start: 20220518

REACTIONS (2)
  - Prostatitis [Unknown]
  - Prostatic abscess [Unknown]

NARRATIVE: CASE EVENT DATE: 20220527
